FAERS Safety Report 22285402 (Version 1)
Quarter: 2023Q2

REPORT INFORMATION
  Report Type: Report from Study
  Country: FR (occurrence: FR)
  Receive Date: 20230504
  Receipt Date: 20230504
  Transmission Date: 20230722
  Serious: Yes (Hospitalization)
  Sender: FDA-Public Use
  Company Number: FR-JNJFOC-20230115479

PATIENT
  Age: 50 Year
  Sex: Male
  Weight: 111 kg

DRUGS (6)
  1. TECLISTAMAB [Suspect]
     Active Substance: TECLISTAMAB
     Indication: Plasma cell myeloma
     Dosage: FIRST PRIMING DOSE:  60 UG/KG = 6860 UG
     Route: 058
     Dates: start: 20221227
  2. TECLISTAMAB [Suspect]
     Active Substance: TECLISTAMAB
     Dosage: SECOND PRIMING DOSE: 300 UG/KG = 34200 UG (MED KIT NUMBER 706015, 706016
     Route: 058
     Dates: start: 20221229
  3. TECLISTAMAB [Suspect]
     Active Substance: TECLISTAMAB
     Dosage: C1D1: 1500 UG/KG = 171000 UG
     Route: 058
     Dates: start: 20230102
  4. TECLISTAMAB [Suspect]
     Active Substance: TECLISTAMAB
     Dosage: C1D15
     Route: 058
     Dates: start: 20230116
  5. TECLISTAMAB [Suspect]
     Active Substance: TECLISTAMAB
     Dosage: C2D1
     Route: 058
     Dates: start: 20230123
  6. TECLISTAMAB [Suspect]
     Active Substance: TECLISTAMAB
     Dosage: C2D8
     Route: 058
     Dates: start: 20230130

REACTIONS (1)
  - Influenza [Recovered/Resolved]

NARRATIVE: CASE EVENT DATE: 20230109
